FAERS Safety Report 14274880 (Version 1)
Quarter: 2017Q4

REPORT INFORMATION
  Report Type: Spontaneous
  Country: US (occurrence: US)
  Receive Date: 20171212
  Receipt Date: 20171212
  Transmission Date: 20180321
  Serious: No
  Sender: FDA-Public Use
  Company Number: US-BION-005938

PATIENT
  Age: 77 Year
  Sex: Female
  Weight: 113.85 kg

DRUGS (12)
  1. CLOBETASOL [Concomitant]
     Active Substance: CLOBETASOL
     Dosage: 0.05%
     Route: 061
  2. NITROFURANTOIN/NITROFURANTOIN SODIUM [Concomitant]
     Dosage: MACRO CRYSTAL ?TAKE 1 CAPSULE(S) EVERY DAY BY ORAL ROUTE FOR 90 DAYS.
     Route: 048
  3. LEVOTHYROXINE. [Concomitant]
     Active Substance: LEVOTHYROXINE
     Dosage: TAKE 1 TABLET(S) EVERY DAY BY ORAL ROUTE FOR 90 DAYS.
     Route: 048
  4. ALPRAZOLAM. [Concomitant]
     Active Substance: ALPRAZOLAM
  5. ANASTROZOLE. [Concomitant]
     Active Substance: ANASTROZOLE
     Dosage: 1 TABLET(S) EVERY DAY BY ORAL ROUTE FOR 90 DAYS.
     Route: 048
  6. LIDOCAINE. [Concomitant]
     Active Substance: LIDOCAINE
     Dosage: 5%
     Route: 061
  7. AMLODIPINE [Concomitant]
     Active Substance: AMLODIPINE BESYLATE
     Dosage: TAKE 1 TABLET(S) EVERY DAY  FOR 90 DAYS.
     Route: 048
  8. ERGOCALCIFEROL. [Suspect]
     Active Substance: ERGOCALCIFEROL
     Indication: BACK PAIN
     Dosage: DOZED VITAMIN D WEEKLY FOR SEVERAL MONTHS
  9. IBRANCE [Concomitant]
     Active Substance: PALBOCICLIB
     Dosage: TAKE 1 CAPSULE(S) EVERYDAY BY ORAL ROUTE FOR 28 DAYS
     Route: 048
  10. ESCITALOPRAM [Concomitant]
     Active Substance: ESCITALOPRAM OXALATE
     Dosage: TAKE 1 TABLET EVERY DAY FOR 90 DAY
     Route: 048
  11. HYDROCHLOROTHIAZIDE/VALSARTAN [Concomitant]
     Dosage: VALSARTAN 80 MG-HYDROCHLOROTHIAZIDE 12.5 MG
  12. CODEINE/PARACETAMOL [Concomitant]
     Dosage: ACETAMINOPHEN 300 MG-CODELNE 30 MG

REACTIONS (1)
  - Drug ineffective [Not Recovered/Not Resolved]
